FAERS Safety Report 16121835 (Version 1)
Quarter: 2019Q2

REPORT INFORMATION
  Report Type: Spontaneous
  Country: US (occurrence: US)
  Receive Date: 20190326
  Receipt Date: 20190326
  Transmission Date: 20190711
  Serious: Yes (Other)
  Sender: FDA-Public Use
  Company Number: None

PATIENT
  Age: 62 Year
  Sex: Female
  Weight: 63 kg

DRUGS (4)
  1. AMLODIPINE BESYLATE. [Suspect]
     Active Substance: AMLODIPINE BESYLATE
     Indication: HYPERTENSION
     Dosage: ?          QUANTITY:1 TABLET(S);?
     Route: 048
     Dates: start: 20190112
  2. ATENOLOL 25 MG [Concomitant]
     Active Substance: ATENOLOL
  3. MULTI VITAMIN [Concomitant]
     Active Substance: VITAMINS
  4. PEPCID 25 MG [Concomitant]

REACTIONS (1)
  - Dizziness [None]

NARRATIVE: CASE EVENT DATE: 20190307
